FAERS Safety Report 10380980 (Version 2)
Quarter: 2014Q3

REPORT INFORMATION
  Report Type: Spontaneous
  Country: AT (occurrence: AT)
  Receive Date: 20140813
  Receipt Date: 20140902
  Transmission Date: 20150326
  Serious: Yes (Death, Other)
  Sender: FDA-Public Use
  Company Number: AT-JNJFOC-20140809653

PATIENT
  Age: 80 Year
  Sex: Male
  Weight: 75 kg

DRUGS (2)
  1. XARELTO [Suspect]
     Active Substance: RIVAROXABAN
     Indication: ATRIAL FIBRILLATION
     Route: 048
     Dates: start: 201407
  2. XARELTO [Suspect]
     Active Substance: RIVAROXABAN
     Indication: CEREBROVASCULAR ACCIDENT PROPHYLAXIS
     Route: 048
     Dates: start: 201407

REACTIONS (6)
  - Embolism [Unknown]
  - Drug ineffective [Unknown]
  - Infarction [Unknown]
  - Cerebral haematoma [Fatal]
  - Cerebrovascular accident [Unknown]
  - Hernia [Unknown]

NARRATIVE: CASE EVENT DATE: 20140811
